FAERS Safety Report 11706672 (Version 1)
Quarter: 2015Q4

REPORT INFORMATION
  Report Type: Report from Study
  Country: GR (occurrence: GR)
  Receive Date: 20151106
  Receipt Date: 20151106
  Transmission Date: 20160304
  Serious: Yes (Hospitalization)
  Sender: FDA-Public Use
  Company Number: GR-ABBVIE-15P-066-1476252-00

PATIENT
  Sex: Male

DRUGS (10)
  1. DUODOPA [Suspect]
     Active Substance: CARBIDOPA\LEVODOPA
     Dosage: MORNING DOSE: 10 ML, CONTINUOUS RATE: 4.0 ML/H, EXTRA DOSE: 3 ML
     Route: 050
  2. REMERON [Concomitant]
     Active Substance: MIRTAZAPINE
     Indication: DEPRESSION
     Route: 048
  3. DUODOPA [Suspect]
     Active Substance: CARBIDOPA\LEVODOPA
     Dosage: MORNING DOSE: 10 ML, CONTINUOUS RATE: 3.8 ML/H, EXTRA DOSE: 2 ML
     Route: 050
  4. DUODOPA [Suspect]
     Active Substance: CARBIDOPA\LEVODOPA
     Indication: PARKINSON^S DISEASE
     Dosage: MORNING DOSE: 10 ML, CONTINUOUS RATE: 3.6 ML/H, EXTRA DOSE: 2 ML
     Route: 050
     Dates: start: 20150531
  5. MIRAPEXIN [Concomitant]
     Active Substance: PRAMIPEXOLE
     Indication: PARKINSON^S DISEASE
     Dosage: IN THE EVENING
     Route: 048
  6. CIPRALEX [Concomitant]
     Active Substance: ESCITALOPRAM OXALATE
     Indication: DEPRESSION
     Route: 048
  7. STALEVO [Concomitant]
     Active Substance: CARBIDOPA\ENTACAPONE\LEVODOPA
     Indication: PRODUCT USED FOR UNKNOWN INDICATION
  8. SINEMET [Concomitant]
     Active Substance: CARBIDOPA\LEVODOPA
     Indication: PARKINSON^S DISEASE
     Dosage: (200+50) MG
     Route: 048
  9. MIRAPEXIN [Concomitant]
     Active Substance: PRAMIPEXOLE
     Indication: PARKINSON^S DISEASE
     Dosage: IN THE MORNING
     Route: 048
  10. STALEVO [Concomitant]
     Active Substance: CARBIDOPA\ENTACAPONE\LEVODOPA
     Indication: PARKINSON^S DISEASE
     Dosage: (200+50+200) MG
     Route: 048

REACTIONS (7)
  - Device alarm issue [Unknown]
  - Neurological symptom [Recovered/Resolved]
  - Dystonia [Not Recovered/Not Resolved]
  - Gait disturbance [Not Recovered/Not Resolved]
  - Stoma site irritation [Recovered/Resolved]
  - Device leakage [Unknown]
  - Device occlusion [Unknown]

NARRATIVE: CASE EVENT DATE: 201509
